FAERS Safety Report 5316363-9 (Version None)
Quarter: 2007Q2

REPORT INFORMATION
  Report Type: 
  Country: None (occurrence: None)
  Receive Date: 20070430
  Receipt Date: 20070412
  Transmission Date: 20071010
  Serious: Yes (Other)
  Sender: FDA-Public Use
  Company Number: 2007VX001149

PATIENT
  Sex: Female

DRUGS (1)
  1. PERMAX [Suspect]
     Indication: RESTLESS LEGS SYNDROME
     Dates: start: 19990101, end: 20050101

REACTIONS (4)
  - ANTINUCLEAR ANTIBODY [None]
  - CORONARY ARTERY DISEASE [None]
  - MITRAL VALVE STENOSIS [None]
  - PULMONARY HYPERTENSION [None]
